FAERS Safety Report 17647283 (Version 1)
Quarter: 2020Q2

REPORT INFORMATION
  Report Type: Spontaneous
  Country: US (occurrence: US)
  Receive Date: 20200408
  Receipt Date: 20200408
  Transmission Date: 20200713
  Serious: No
  Sender: FDA-Public Use
  Company Number: US-OPTINOSE US, INC-2019OPT001022

PATIENT
  Age: 38 Year
  Sex: Female

DRUGS (2)
  1. XHANCE [Suspect]
     Active Substance: FLUTICASONE PROPIONATE
     Indication: HYPOGEUSIA
     Route: 045
     Dates: start: 20191214
  2. XHANCE [Suspect]
     Active Substance: FLUTICASONE PROPIONATE
     Indication: HYPOSMIA

REACTIONS (3)
  - Wound [Recovering/Resolving]
  - Device breakage [Unknown]
  - Product use in unapproved indication [Unknown]

NARRATIVE: CASE EVENT DATE: 20191214
